FAERS Safety Report 9560076 (Version 1)
Quarter: 2013Q3

REPORT INFORMATION
  Report Type: Spontaneous
  Country: US (occurrence: US)
  Receive Date: 20130927
  Receipt Date: 20130927
  Transmission Date: 20140515
  Serious: No
  Sender: FDA-Public Use
  Company Number: US-PFIZER INC-2013277080

PATIENT
  Sex: Female

DRUGS (2)
  1. NICOTROL INHALER [Suspect]
     Indication: SMOKING CESSATION THERAPY
     Dosage: 10 MG, 1X/DAY
     Dates: start: 20130923, end: 20130923
  2. NICOTROL INHALER [Suspect]
     Dosage: UNK
     Dates: start: 20130924, end: 20130924

REACTIONS (1)
  - Feeling abnormal [Unknown]
